FAERS Safety Report 7424806-X (Version None)
Quarter: 2011Q2

REPORT INFORMATION
  Report Type: 
  Country: None (occurrence: None)
  Receive Date: 20110419
  Receipt Date: 20110314
  Transmission Date: 20111010
  Serious: No
  Sender: FDA-Public Use
  Company Number: US-ABBOTT-11P-163-0700479-00

PATIENT
  Sex: Male

DRUGS (1)
  1. LUPRON DEPOT-PED [Suspect]
     Indication: PRECOCIOUS PUBERTY
     Route: 050
     Dates: end: 20110101

REACTIONS (5)
  - PAIN IN EXTREMITY [None]
  - INJECTION SITE DISCOLOURATION [None]
  - LIMB DISCOMFORT [None]
  - INJECTION SITE ERYTHEMA [None]
  - INJECTION SITE ABSCESS [None]
